FAERS Safety Report 4961165-6 (Version None)
Quarter: 2006Q1

REPORT INFORMATION
  Report Type: 
  Country: None (occurrence: None)
  Receive Date: 20060201
  Receipt Date: 20051027
  Transmission Date: 20060701
  Serious: No
  Sender: FDA-Public Use
  Company Number: 2005PV003785

PATIENT
  Age: 56 Year
  Sex: Female
  Weight: 94.8018 kg

DRUGS (13)
  1. BYETTA [Suspect]
     Indication: DIABETES MELLITUS NON-INSULIN-DEPENDENT
     Dosage: 10 MCG;BID;SC    : 5 MCG;BID;SC
     Route: 058
     Dates: start: 20050916, end: 20051015
  2. BYETTA [Suspect]
     Indication: DIABETES MELLITUS NON-INSULIN-DEPENDENT
     Dosage: 10 MCG;BID;SC    : 5 MCG;BID;SC
     Route: 058
     Dates: start: 20051016
  3. CALCIUM GLUCONATE [Concomitant]
  4. ASPIRIN [Concomitant]
  5. FLONASE [Concomitant]
  6. OMEGA 3 [Concomitant]
  7. LOTREL [Concomitant]
  8. TOPROL-XL [Concomitant]
  9. CELEXA [Concomitant]
  10. MOBIC [Concomitant]
  11. PRAVACHOL [Concomitant]
  12. SYNTHROID [Concomitant]
  13. GLUCOPHAGE [Concomitant]

REACTIONS (2)
  - INJECTION SITE PRURITUS [None]
  - INJECTION SITE URTICARIA [None]
